FAERS Safety Report 18733893 (Version 2)
Quarter: 2021Q1

REPORT INFORMATION
  Report Type: Report from Study
  Country: US (occurrence: US)
  Receive Date: 20210113
  Receipt Date: 20210302
  Transmission Date: 20210419
  Serious: Yes (Hospitalization)
  Sender: FDA-Public Use
  Company Number: US-ALNYLAM PHARMACEUTICALS, INC.-ALN-2021-000023

PATIENT

DRUGS (1)
  1. GIVLAARI [Suspect]
     Active Substance: GIVOSIRAN SODIUM
     Indication: PORPHYRIA ACUTE
     Dosage: 2.5 MILLIGRAM/KILOGRAM, MONTHLY
     Route: 058
     Dates: start: 20201029

REACTIONS (6)
  - Hallucination [Unknown]
  - Vein disorder [Unknown]
  - Porphyria acute [Unknown]
  - Confusional state [Unknown]
  - Abnormal dreams [Unknown]
  - Hypertension [Unknown]

NARRATIVE: CASE EVENT DATE: 20210105
